FAERS Safety Report 8439246-4 (Version None)
Quarter: 2012Q2

REPORT INFORMATION
  Report Type: 
  Country: None (occurrence: None)
  Receive Date: 20120615
  Receipt Date: 20120611
  Transmission Date: 20120825
  Serious: Yes (Hospitalization)
  Sender: FDA-Public Use
  Company Number: PHHY2012BR050155

PATIENT
  Sex: Female

DRUGS (1)
  1. ONBREZ [Suspect]

REACTIONS (1)
  - RESPIRATORY DISORDER [None]
